FAERS Safety Report 24022975 (Version 13)
Quarter: 2024Q3

REPORT INFORMATION
  Report Type: Report from Study
  Country: CN (occurrence: CN)
  Receive Date: 20240627
  Receipt Date: 20240710
  Transmission Date: 20241017
  Serious: No
  Sender: ROCHE
  Company Number: CN-ROCHE-3317240

PATIENT
  Age: 64 Year
  Sex: Female
  Weight: 50.0 kg

DRUGS (23)
  1. ALECTINIB [Suspect]
     Active Substance: ALECTINIB
     Indication: Non-small cell lung cancer metastatic
     Route: 048
     Dates: start: 20210929
  2. ALECTINIB [Suspect]
     Active Substance: ALECTINIB
     Route: 048
     Dates: start: 20200926
  3. HEART TREASURE PILL [Concomitant]
     Indication: Sinus bradycardia
     Route: 048
     Dates: start: 20210928
  4. URSODIOL [Concomitant]
     Active Substance: URSODIOL
     Route: 048
     Dates: start: 20210927
  5. ZOLEDRONIC ACID [Concomitant]
     Active Substance: ZOLEDRONIC ACID
     Indication: Metastases to bone
     Route: 050
     Dates: start: 20230223, end: 20230223
  6. ZOLEDRONIC ACID [Concomitant]
     Active Substance: ZOLEDRONIC ACID
     Route: 050
     Dates: start: 20230322, end: 20230322
  7. ZOLEDRONIC ACID [Concomitant]
     Active Substance: ZOLEDRONIC ACID
     Route: 042
     Dates: start: 20230425, end: 20230425
  8. ZOLEDRONIC ACID [Concomitant]
     Active Substance: ZOLEDRONIC ACID
     Dosage: EQUILIBRIUM ELECTROLYTE
     Route: 042
     Dates: start: 20230524, end: 20230524
  9. ZOLEDRONIC ACID [Concomitant]
     Active Substance: ZOLEDRONIC ACID
     Route: 042
     Dates: start: 20230627, end: 20230627
  10. ZOLEDRONIC ACID [Concomitant]
     Active Substance: ZOLEDRONIC ACID
     Route: 042
     Dates: start: 20230727, end: 20230727
  11. ZOLEDRONIC ACID [Concomitant]
     Active Substance: ZOLEDRONIC ACID
     Route: 042
     Dates: start: 20230823, end: 20230823
  12. ZOLEDRONIC ACID [Concomitant]
     Active Substance: ZOLEDRONIC ACID
     Route: 042
     Dates: start: 20230920, end: 20230920
  13. ZOLEDRONIC ACID [Concomitant]
     Active Substance: ZOLEDRONIC ACID
     Route: 042
     Dates: start: 20231018, end: 20231018
  14. ZOLEDRONIC ACID [Concomitant]
     Active Substance: ZOLEDRONIC ACID
     Dosage: ADJUVANT TUMOR THERAPY
     Route: 042
     Dates: start: 20231018, end: 20231018
  15. ZOLEDRONIC ACID [Concomitant]
     Active Substance: ZOLEDRONIC ACID
     Route: 050
     Dates: start: 202207, end: 202209
  16. VITAMIN C [Concomitant]
     Active Substance: ASCORBIC ACID
     Route: 050
     Dates: start: 20230321, end: 20230322
  17. VITAMIN C [Concomitant]
     Active Substance: ASCORBIC ACID
     Route: 042
     Dates: start: 20230426, end: 20230426
  18. VITAMIN B6 [Concomitant]
     Active Substance: PYRIDOXINE HYDROCHLORIDE
     Route: 050
     Dates: start: 20230321, end: 20230322
  19. VITAMIN B6 [Concomitant]
     Active Substance: PYRIDOXINE HYDROCHLORIDE
     Route: 042
     Dates: start: 20230426, end: 20230426
  20. MANNATIDE [Concomitant]
     Indication: Neoplasm
     Route: 042
     Dates: start: 20230626, end: 20230627
  21. MANNATIDE [Concomitant]
     Route: 050
     Dates: start: 20220615, end: 20220616
  22. MANNATIDE [Concomitant]
     Route: 050
     Dates: start: 20220713, end: 20220715
  23. DEXAMETHASONE [Concomitant]
     Active Substance: DEXAMETHASONE
     Dosage: BOOST IMMUNITY
     Route: 050
     Dates: start: 20220616, end: 20220616

REACTIONS (7)
  - Blood alkaline phosphatase increased [Recovered/Resolved]
  - Blood cholesterol increased [Not Recovered/Not Resolved]
  - Blood bilirubin increased [Recovered/Resolved]
  - Anaemia [Not Recovered/Not Resolved]
  - Sinus bradycardia [Recovered/Resolved]
  - Hypertriglyceridaemia [Recovered/Resolved]
  - Blood creatinine increased [Not Recovered/Not Resolved]

NARRATIVE: CASE EVENT DATE: 20220714
